FAERS Safety Report 6919861-7 (Version None)
Quarter: 2010Q3

REPORT INFORMATION
  Report Type: 
  Country: None (occurrence: None)
  Receive Date: 20100811
  Receipt Date: 20100728
  Transmission Date: 20110219
  Serious: Yes (Other)
  Sender: FDA-Public Use
  Company Number: CA-PFIZER INC-2010095252

PATIENT
  Age: 88 Year
  Sex: Male

DRUGS (5)
  1. REVATIO [Suspect]
     Dosage: 20 MG, UNK
     Dates: start: 20100601
  2. FUROSEMIDE [Concomitant]
     Dosage: UNK
  3. AMIODARONE [Concomitant]
     Dosage: UNK
  4. LIPITOR [Concomitant]
     Dosage: UNK
  5. WARFARIN SODIUM [Concomitant]
     Dosage: UNK

REACTIONS (4)
  - DYSGEUSIA [None]
  - RHINORRHOEA [None]
  - SPUTUM INCREASED [None]
  - TREMOR [None]
